FAERS Safety Report 4755631-6 (Version None)
Quarter: 2005Q3

REPORT INFORMATION
  Report Type: 
  Country: None (occurrence: None)
  Receive Date: 20050830
  Receipt Date: 20050608
  Transmission Date: 20060218
  Serious: Yes (Hospitalization, Other)
  Sender: FDA-Public Use
  Company Number: US-BRISTOL-MYERS SQUIBB COMPANY-12997672

PATIENT
  Age: 40 Year
  Sex: Male
  Weight: 116 kg

DRUGS (3)
  1. ABILIFY [Suspect]
     Indication: SCHIZOAFFECTIVE DISORDER
     Dosage: VARYING DOSES FROM 15 MG/DAY TO 30 MG/DAY
  2. PROZAC [Concomitant]
  3. TOPAMAX [Concomitant]

REACTIONS (2)
  - MANIA [None]
  - THERAPEUTIC RESPONSE DECREASED [None]
